FAERS Safety Report 8933308 (Version 7)
Quarter: 2014Q2

REPORT INFORMATION
  Report Type: Report from Study
  Country: LB (occurrence: LB)
  Receive Date: 20121129
  Receipt Date: 20140523
  Transmission Date: 20141212
  Serious: Yes (Hospitalization, Other)
  Sender: FDA-Public Use
  Company Number: PHHY2012LB064317

PATIENT
  Age: 67 Year
  Sex: Female

DRUGS (12)
  1. GLIVEC [Suspect]
     Indication: CHRONIC MYELOID LEUKAEMIA
     Dosage: 400 MG DAILY
     Route: 048
     Dates: start: 20090601
  2. GLUCOPHAGE [Concomitant]
     Dosage: 1 DF, Q12H
     Route: 048
  3. AMARYL [Concomitant]
     Dosage: 1 DF DAILY
     Route: 048
  4. SIMVASTATIN [Concomitant]
     Dosage: 1 DF DAILY
     Route: 048
  5. APROVEL [Concomitant]
     Dosage: 1 DF DAILY
     Route: 048
  6. CONCOR COR [Concomitant]
     Dosage: 1 DF DAILY
     Route: 048
  7. LASIX [Concomitant]
     Dosage: 1 DF DAILY
     Route: 048
  8. DIAMICRON [Concomitant]
     Dosage: UNK UKN, PRN
     Route: 048
  9. EPREX [Concomitant]
     Dosage: UNK UKN, UNK
  10. ANGIOTENSIN II [Concomitant]
     Dosage: UNK UKN, UNK
  11. DIURETICS [Concomitant]
     Dosage: UNK UKN, UNK
  12. ANALGESICS [Concomitant]
     Dosage: UNK UKN, UNK

REACTIONS (10)
  - Anal abscess [Recovering/Resolving]
  - Diarrhoea [Recovered/Resolved]
  - Fracture [Recovering/Resolving]
  - Renal failure [Not Recovered/Not Resolved]
  - Anaemia [Recovering/Resolving]
  - Fatigue [Recovering/Resolving]
  - Vomiting [Not Recovered/Not Resolved]
  - Headache [Not Recovered/Not Resolved]
  - Hypertension [Not Recovered/Not Resolved]
  - Oedema [Unknown]
